FAERS Safety Report 4608941-7 (Version None)
Quarter: 2005Q1

REPORT INFORMATION
  Report Type: 
  Country: None (occurrence: None)
  Receive Date: 20050311
  Receipt Date: 20050131
  Transmission Date: 20050727
  Serious: Yes (Hospitalization)
  Sender: FDA-Public Use
  Company Number: 2003-102605-NL

PATIENT
  Age: 54 Year
  Sex: Female

DRUGS (1)
  1. MIRTAZAPINE [Suspect]
     Indication: MAJOR DEPRESSION
     Dosage: DF
     Route: 048
     Dates: start: 20021205, end: 20021228

REACTIONS (3)
  - HEPATIC ENZYME INCREASED [None]
  - HEPATOTOXICITY [None]
  - LIVER DISORDER [None]
